FAERS Safety Report 5521732-8 (Version None)
Quarter: 2007Q4

REPORT INFORMATION
  Report Type: 
  Country: None (occurrence: None)
  Receive Date: 20071120
  Receipt Date: 20071108
  Transmission Date: 20080405
  Serious: Yes (Hospitalization)
  Sender: FDA-Public Use
  Company Number: US-JNJFOC-20071102953

PATIENT
  Sex: Male
  Weight: 39 kg

DRUGS (4)
  1. INFLIXIMAB [Suspect]
     Indication: COLITIS ULCERATIVE
     Route: 042
  2. METHOTREXATE [Concomitant]
     Dosage: EVERY SATURDAY AND SUNDAY
  3. FOLIC ACID [Concomitant]
     Dosage: MONDAY THROUGH FRIDAY
  4. PENTASA [Concomitant]

REACTIONS (1)
  - COLITIS ULCERATIVE [None]
